FAERS Safety Report 18136218 (Version 2)
Quarter: 2020Q4

REPORT INFORMATION
  Report Type: Spontaneous
  Country: US (occurrence: US)
  Receive Date: 20200811
  Receipt Date: 20201007
  Transmission Date: 20210113
  Serious: Yes (Hospitalization, Other)
  Sender: FDA-Public Use
  Company Number: US-JNJFOC-20200803490

PATIENT
  Age: 83 Year
  Sex: Male

DRUGS (11)
  1. ZYTIGA [Suspect]
     Active Substance: ABIRATERONE ACETATE
     Indication: PRODUCT USED FOR UNKNOWN INDICATION
     Route: 048
  2. ZYTIGA [Suspect]
     Active Substance: ABIRATERONE ACETATE
     Route: 048
  3. TYLENOL [Concomitant]
     Active Substance: ACETAMINOPHEN
  4. MYRBETRIQ [Concomitant]
     Active Substance: MIRABEGRON
  5. WARFARIN [Concomitant]
     Active Substance: WARFARIN
  6. DULOXETINE. [Concomitant]
     Active Substance: DULOXETINE
  7. SENNA                              /00142201/ [Concomitant]
     Active Substance: SENNA LEAF
  8. LIDOCAINE. [Concomitant]
     Active Substance: LIDOCAINE
  9. VITAMIN D3 [Concomitant]
     Active Substance: CHOLECALCIFEROL
  10. DONEPEZIL. [Concomitant]
     Active Substance: DONEPEZIL
  11. HYDROCORTISONE. [Concomitant]
     Active Substance: HYDROCORTISONE

REACTIONS (5)
  - Post procedural infection [Unknown]
  - Off label use [Unknown]
  - Nephrolithiasis [Unknown]
  - Sepsis [Unknown]
  - Product use issue [Unknown]

NARRATIVE: CASE EVENT DATE: 202007
